APPROVED DRUG PRODUCT: PHENYTOIN
Active Ingredient: PHENYTOIN
Strength: 50MG
Dosage Form/Route: TABLET, CHEWABLE;ORAL
Application: A200565 | Product #001 | TE Code: AB
Applicant: TARO PHARMACEUTICAL INDUSTRIES LTD
Approved: Apr 17, 2014 | RLD: No | RS: No | Type: RX